FAERS Safety Report 5158916-7 (Version None)
Quarter: 2006Q4

REPORT INFORMATION
  Report Type: 
  Country: None (occurrence: None)
  Receive Date: 20061117
  Receipt Date: 20061107
  Transmission Date: 20070319
  Serious: Yes (Hospitalization)
  Sender: FDA-Public Use
  Company Number: HQWYE332922JUL04

PATIENT
  Age: 51 Year
  Sex: Female
  Weight: 68.55 kg

DRUGS (1)
  1. PREMPRO [Suspect]
     Indication: HORMONE REPLACEMENT THERAPY

REACTIONS (5)
  - BREAST CANCER METASTATIC [None]
  - BREAST CANCER RECURRENT [None]
  - METASTASES TO LYMPH NODES [None]
  - PLEURAL FIBROSIS [None]
  - VENA CAVA THROMBOSIS [None]
